FAERS Safety Report 7145109-7 (Version None)
Quarter: 2010Q4

REPORT INFORMATION
  Report Type: 
  Country: None (occurrence: None)
  Receive Date: 20101208
  Receipt Date: 20101203
  Transmission Date: 20110411
  Serious: Yes (Life-Threatening, Hospitalization)
  Sender: FDA-Public Use
  Company Number: DE-JNJFOC-20101202757

PATIENT
  Age: 57 Year
  Sex: Female

DRUGS (4)
  1. TAVANIC [Suspect]
     Indication: BRONCHITIS
     Route: 048
  2. SALBUTAMOL [Concomitant]
     Route: 065
  3. ACETYLCYSTEINE [Concomitant]
     Route: 065
  4. BUDESONIDE [Concomitant]
     Route: 065

REACTIONS (7)
  - ALLERGIC OEDEMA [None]
  - APHONIA [None]
  - DYSPNOEA [None]
  - HYPERSENSITIVITY [None]
  - PARAESTHESIA ORAL [None]
  - SENSATION OF FOREIGN BODY [None]
  - SWELLING [None]
